FAERS Safety Report 15034755 (Version 1)
Quarter: 2018Q2

REPORT INFORMATION
  Report Type: Spontaneous
  Country: NL (occurrence: NL)
  Receive Date: 20180620
  Receipt Date: 20180620
  Transmission Date: 20180711
  Serious: Yes (Other)
  Sender: FDA-Public Use
  Company Number: NL-CPL-000510

PATIENT
  Age: 43 Year
  Sex: Female

DRUGS (27)
  1. FOLIC ACID. [Suspect]
     Active Substance: FOLIC ACID
     Indication: PRODUCT USED FOR UNKNOWN INDICATION
  2. MOLYBDENUM [Concomitant]
     Active Substance: MOLYBDENUM
     Dosage: STRENGTH: 50 UG; TWO TABLETS
  3. SELENIUM [Concomitant]
     Active Substance: SELENIUM
     Dosage: STRENGTH: 50 UG; TWO TABLETS
  4. ZINC. [Concomitant]
     Active Substance: ZINC
     Dosage: STRENGTH: 30 MG; TWO TABLETS
  5. COLECALCIFEROL [Concomitant]
     Active Substance: CHOLECALCIFEROL
     Dosage: THEN MONTHLY
  6. BIOTIN [Concomitant]
     Active Substance: BIOTIN
     Dosage: STRENGTH: 100 UG; TWO TABLETS
  7. ALUMINIUM HYDROXIDE/MAGNESIUM HYDROXIDE [Concomitant]
     Dosage: STRENGTH: 250 MG; TWO TABLETS
  8. MANGANESE/MANGANESE CHELATE/MANGANESE CHLORIDE/MANGANESE GLUCONATE/MANGANESE SULFATE [Concomitant]
     Dosage: STRENGTH: 5 MG; TWO TABLETS
  9. THIAMINE. [Concomitant]
     Active Substance: THIAMINE
     Dosage: STRENGTH: 2.2 MG; TWO TABLETS
  10. CYANOCOBALAMIN. [Concomitant]
     Active Substance: CYANOCOBALAMIN
     Dosage: STRENGTH: 5 UG; TWO TABLETS
  11. TOCOPHEROL [Concomitant]
     Active Substance: TOCOPHEROL
     Dosage: STRENGTH: 24 MG; TWO TABLETS
  12. CALCIUM CARBONATE. [Concomitant]
     Active Substance: CALCIUM CARBONATE
  13. RIBOFLAVIN [Concomitant]
     Active Substance: RIBOFLAVIN
     Dosage: STRENGTH: 2.8 MG; TWO TABLETS
  14. PHYTOMENADIONE [Concomitant]
     Active Substance: PHYTONADIONE
     Dosage: STRENGTH: 150 UG; TWO TABLETS
  15. PHOSPHORUS [Concomitant]
     Active Substance: PHOSPHORUS
     Dosage: STRENGTH: 210 MG; TWO TABLETS
  16. IODINE. [Concomitant]
     Active Substance: IODINE
     Dosage: STRENGTH: 300 UG; TWO TABLETS
  17. RETINOL [Concomitant]
     Active Substance: RETINOL
     Dosage: STRENGTH: 160UG; TWO TABLETS
  18. CALCIUM [Concomitant]
     Active Substance: CALCIUM
     Dosage: STRENGTH: 320 MG; TWO TABLETS
  19. IRON [Concomitant]
     Active Substance: IRON
     Route: 042
  20. PYRIDOXINE [Concomitant]
     Active Substance: PYRIDOXINE
     Dosage: STRENGTH: 2.8 MG; TWO TABLETS
  21. ASCORBIC ACID/FOLIC ACID/VITAMIN B NOS [Concomitant]
     Dosage: STRENGTH: 400 UG; TWO TABLETS
  22. NICOTINAMIDE [Concomitant]
     Active Substance: NIACINAMIDE
     Dosage: STRENGTH: 32 MG; TWO TABLETS
  23. PANTOTHENIC ACID [Concomitant]
     Active Substance: PANTOTHENIC ACID
     Dosage: STRENGTH: 12 MG; TWO TABLETS
  24. ASCORBIC ACID. [Concomitant]
     Active Substance: ASCORBIC ACID
     Dosage: STRENGTH: 160 MG; TWO TABLETS
  25. ERGOCALCIFEROL. [Concomitant]
     Active Substance: ERGOCALCIFEROL
     Dosage: STRENGTH: 10 UG; TWO TABLETS
  26. COPPER/COPPER OLEATE/COPPER SULFATE [Concomitant]
     Dosage: STRENGTH: 3 MG; TWO TABLETS
  27. IRON [Concomitant]
     Active Substance: IRON
     Dosage: STRENGTH: 28 MG; TWO TABLETS

REACTIONS (2)
  - Acute polyneuropathy [Recovered/Resolved]
  - Neuropsychiatric symptoms [Recovered/Resolved]
